FAERS Safety Report 21207491 (Version 1)
Quarter: 2022Q3

REPORT INFORMATION
  Report Type: Report from Study
  Country: FR (occurrence: None)
  Receive Date: 20220812
  Receipt Date: 20220812
  Transmission Date: 20221027
  Serious: Yes (Other)
  Sender: FDA-Public Use
  Company Number: FR-Merck Healthcare KGaA-9342804

PATIENT
  Age: 58 Year
  Sex: Male
  Weight: 78 kg

DRUGS (5)
  1. AVELUMAB [Suspect]
     Active Substance: AVELUMAB
     Indication: Squamous cell carcinoma of head and neck
     Dosage: 800
     Dates: start: 20200518, end: 20200518
  2. AVELUMAB [Suspect]
     Active Substance: AVELUMAB
     Dosage: 790 MG
     Dates: start: 20200525, end: 20200525
  3. CETUXIMAB [Suspect]
     Active Substance: CETUXIMAB
     Indication: Squamous cell carcinoma of head and neck
     Dosage: 800 MG
     Dates: start: 20200518
  4. CETUXIMAB [Suspect]
     Active Substance: CETUXIMAB
     Dosage: 497 MG
     Dates: start: 20200525
  5. CETUXIMAB [Suspect]
     Active Substance: CETUXIMAB
     Dosage: 497 MG
     Dates: start: 20200608

REACTIONS (1)
  - Hepatocellular injury [Recovered/Resolved with Sequelae]

NARRATIVE: CASE EVENT DATE: 20200612
